FAERS Safety Report 16941570 (Version 1)
Quarter: 2019Q4

REPORT INFORMATION
  Report Type: Spontaneous
  Country: US (occurrence: US)
  Receive Date: 20191020
  Receipt Date: 20191020
  Transmission Date: 20200122
  Serious: Yes (Life-Threatening, Hospitalization, Disabling, Other)
  Sender: FDA-Public Use
  Company Number: None

PATIENT
  Age: 43 Year
  Sex: Female
  Weight: 75.6 kg

DRUGS (7)
  1. ADDERALL [Concomitant]
     Active Substance: AMPHETAMINE ASPARTATE\AMPHETAMINE SULFATE\DEXTROAMPHETAMINE SACCHARATE\DEXTROAMPHETAMINE SULFATE
  2. LEVAQUIN [Suspect]
     Active Substance: LEVOFLOXACIN
     Indication: DIARRHOEA INFECTIOUS
  3. CIPRO [Suspect]
     Active Substance: CIPROFLOXACIN HYDROCHLORIDE
     Indication: URINARY TRACT INFECTION
  4. MULTI VITAMINS [Concomitant]
     Active Substance: VITAMINS
  5. MAGNESIUM [Concomitant]
     Active Substance: MAGNESIUM
  6. SOMINEX [Concomitant]
     Active Substance: DIPHENHYDRAMINE HYDROCHLORIDE
  7. ANTIHISTAMINES [Concomitant]
     Active Substance: ANTIHISTAMINES NOS

REACTIONS (50)
  - Depression [None]
  - Epistaxis [None]
  - Tinnitus [None]
  - Emotional disorder [None]
  - Joint swelling [None]
  - Alopecia [None]
  - Tooth disorder [None]
  - Headache [None]
  - Nervous system disorder [None]
  - Crying [None]
  - Post-traumatic stress disorder [None]
  - Myalgia [None]
  - Spinal pain [None]
  - Asthenia [None]
  - Food intolerance [None]
  - Muscular weakness [None]
  - Discomfort [None]
  - Urinary tract infection [None]
  - Intervertebral disc protrusion [None]
  - Fatigue [None]
  - Visual field defect [None]
  - Sensory disturbance [None]
  - Lymphadenopathy [None]
  - Dissociative disorder [None]
  - Feeling abnormal [None]
  - Disturbance in attention [None]
  - Tendon pain [None]
  - Muscle spasms [None]
  - Paraesthesia [None]
  - Visual impairment [None]
  - Feeling of despair [None]
  - Suicidal ideation [None]
  - Visual acuity reduced [None]
  - Ovarian cyst [None]
  - Onychomadesis [None]
  - Loss of personal independence in daily activities [None]
  - Musculoskeletal stiffness [None]
  - Swelling [None]
  - Arthralgia [None]
  - Hypoaesthesia [None]
  - Thinking abnormal [None]
  - Fear [None]
  - Mental impairment [None]
  - Supraventricular tachycardia [None]
  - Dyspnoea [None]
  - Tooth fracture [None]
  - Impaired work ability [None]
  - Pain in extremity [None]
  - Weight increased [None]
  - Gastrointestinal disorder [None]

NARRATIVE: CASE EVENT DATE: 20100317
